FAERS Safety Report 8548504-4 (Version None)
Quarter: 2012Q3

REPORT INFORMATION
  Report Type: 
  Country: None (occurrence: None)
  Receive Date: 20120720
  Receipt Date: 20120720
  Transmission Date: 20120928
  Serious: Yes (Other)
  Sender: FDA-Public Use
  Company Number: None

PATIENT
  Age: 59 Year
  Sex: Female
  Weight: 102.0593 kg

DRUGS (2)
  1. LEVOTHYROXINE SODIUM [Suspect]
  2. LEVOFLOXACIN [Suspect]

REACTIONS (2)
  - DRUG NAME CONFUSION [None]
  - INTERCEPTED DRUG DISPENSING ERROR [None]
